FAERS Safety Report 7231222-2 (Version None)
Quarter: 2011Q1

REPORT INFORMATION
  Report Type: 
  Country: None (occurrence: None)
  Receive Date: 20110118
  Receipt Date: 20110113
  Transmission Date: 20110831
  Serious: Yes (Other)
  Sender: FDA-Public Use
  Company Number: B0689469A

PATIENT
  Sex: Male

DRUGS (4)
  1. URIEF [Concomitant]
     Indication: BENIGN PROSTATIC HYPERPLASIA
     Route: 048
     Dates: start: 20091208
  2. AVOLVE [Suspect]
     Dosage: .5MG PER DAY
     Route: 048
     Dates: start: 20101028, end: 20101104
  3. ADONA (AC-17) [Concomitant]
     Route: 048
     Dates: start: 20091028, end: 20101104
  4. FLOMOX [Concomitant]
     Indication: INFECTION
     Route: 048
     Dates: start: 20091028, end: 20101104

REACTIONS (1)
  - TREMOR [None]
